FAERS Safety Report 6413116-5 (Version None)
Quarter: 2009Q4

REPORT INFORMATION
  Report Type: 
  Country: None (occurrence: None)
  Receive Date: 20091022
  Receipt Date: 20091022
  Transmission Date: 20100525
  Serious: No
  Sender: FDA-Public Use
  Company Number: None

PATIENT
  Age: 21 Year
  Sex: Female

DRUGS (2)
  1. DILAUDID [Suspect]
     Dosage: 1.5MG IM
     Route: 030
  2. ZOFRAN [Suspect]

REACTIONS (3)
  - DRUG DISPENSING ERROR [None]
  - NAUSEA [None]
  - WRONG DRUG ADMINISTERED [None]
